FAERS Safety Report 7490597-X (Version None)
Quarter: 2011Q2

REPORT INFORMATION
  Report Type: 
  Country: None (occurrence: None)
  Receive Date: 20110512
  Receipt Date: 20110426
  Transmission Date: 20111010
  Serious: Yes (Hospitalization)
  Sender: FDA-Public Use
  Company Number: L03-USA-04672-01

PATIENT
  Age: 74 Year
  Sex: Male

DRUGS (8)
  1. VASOTEC (ENALAPRIL MALEATE) (ENALAPRIL MALEATE) [Concomitant]
  2. CITALOPRAM HYDROBROMIDE [Suspect]
     Indication: DEPRESSION
     Dosage: 20 MG (20 MG,1 IN 1 D)
     Dates: start: 20030412, end: 20030412
  3. CITALOPRAM HYDROBROMIDE [Suspect]
     Indication: DEPRESSION
     Dates: start: 20030201, end: 20030410
  4. NITROSTAT (GLYCERYL TRINITRATE) (GLYCERYL TRINITRATE) [Concomitant]
  5. XANAX [Concomitant]
  6. IRINOTECAN HCL [Suspect]
     Dates: start: 20030407, end: 20030407
  7. ZOCOR [Concomitant]
  8. ASPIRIN [Concomitant]

REACTIONS (5)
  - DEPRESSION [None]
  - RHABDOMYOLYSIS [None]
  - DRUG INTERACTION [None]
  - BLOOD SODIUM DECREASED [None]
  - BLOOD POTASSIUM INCREASED [None]
